FAERS Safety Report 10331851 (Version 1)
Quarter: 2014Q3

REPORT INFORMATION
  Report Type: Spontaneous
  Country: US (occurrence: US)
  Receive Date: 20140722
  Receipt Date: 20140722
  Transmission Date: 20150326
  Serious: Yes (Other)
  Sender: FDA-Public Use
  Company Number: US-TEVA-495229USA

PATIENT
  Sex: Female

DRUGS (1)
  1. AMIODARONE [Suspect]
     Active Substance: AMIODARONE

REACTIONS (4)
  - Deafness [Unknown]
  - Blood thyroid stimulating hormone decreased [Unknown]
  - Nervousness [Unknown]
  - Loss of libido [Unknown]
